FAERS Safety Report 5521624-4 (Version None)
Quarter: 2007Q4

REPORT INFORMATION
  Report Type: 
  Country: None (occurrence: None)
  Receive Date: 20071119
  Receipt Date: 20071119
  Transmission Date: 20080405
  Serious: Yes (Other)
  Sender: FDA-Public Use
  Company Number: None

PATIENT
  Age: 40 Year
  Sex: Male
  Weight: 108.8633 kg

DRUGS (1)
  1. WELLBUTRIN XL [Suspect]
     Dosage: 300MG  ONCE PER DAY  PO
     Route: 048
     Dates: start: 20040101, end: 20071001

REACTIONS (1)
  - PSYCHOTIC DISORDER [None]
